FAERS Safety Report 17515489 (Version 1)
Quarter: 2020Q1

REPORT INFORMATION
  Report Type: Spontaneous
  Country: US (occurrence: US)
  Receive Date: 20200309
  Receipt Date: 20200309
  Transmission Date: 20200409
  Serious: Yes (Other)
  Sender: FDA-Public Use
  Company Number: US-GLAXOSMITHKLINE-US2019AMR239845

PATIENT
  Age: 74 Year
  Sex: Female

DRUGS (6)
  1. 5-FLUOROURACIL [Suspect]
     Active Substance: FLUOROURACIL
     Indication: SQUAMOUS CELL CARCINOMA
     Dosage: 500 MG/5 ML
     Route: 026
  2. ACITRETIN. [Suspect]
     Active Substance: ACITRETIN
     Indication: SQUAMOUS CELL CARCINOMA
     Dosage: 25 MG, 1D
  3. ZINC OXIDE. [Suspect]
     Active Substance: ZINC OXIDE
     Indication: SQUAMOUS CELL CARCINOMA
     Dosage: CHEMOWRAPS CONTAINING 20 G OF 5% FLUOROURACIL CREAM TO THE SKIN UNDER OCCLUSIVE ZINC OXIDE-IMPREG
     Route: 061
  4. ACITRETIN. [Suspect]
     Active Substance: ACITRETIN
     Dosage: 10 MG, 1D
  5. ACITRETIN. [Suspect]
     Active Substance: ACITRETIN
     Dosage: 10 MG EVERY OTHER DAY
  6. 5-FLUOROURACIL [Suspect]
     Active Substance: FLUOROURACIL
     Dosage: CHEMOWRAPS CONTAINING 20 G OF 5% FLUOROURACIL CREAM
     Route: 061

REACTIONS (3)
  - Xerosis [Unknown]
  - Alopecia [Unknown]
  - Injection site ulcer [Recovered/Resolved]
